FAERS Safety Report 14946578 (Version 1)
Quarter: 2018Q2

REPORT INFORMATION
  Report Type: Spontaneous
  Country: US (occurrence: US)
  Receive Date: 20180508
  Receipt Date: 20180508
  Transmission Date: 20180711
  Serious: No
  Sender: FDA-Public Use
  Company Number: None

PATIENT
  Age: 46 Year
  Sex: Female

DRUGS (1)
  1. COPAXONE [Suspect]
     Active Substance: GLATIRAMER ACETATE
     Indication: MULTIPLE SCLEROSIS
     Dosage: 40MG THREE TIMES A WEEK
     Route: 058
     Dates: start: 20150810

REACTIONS (3)
  - Tachycardia [None]
  - Dizziness [None]
  - Flushing [None]

NARRATIVE: CASE EVENT DATE: 20180410
